FAERS Safety Report 5052606-7 (Version None)
Quarter: 2006Q3

REPORT INFORMATION
  Report Type: 
  Country: None (occurrence: None)
  Receive Date: 20060717
  Receipt Date: 20060704
  Transmission Date: 20061208
  Serious: Yes (Hospitalization)
  Sender: FDA-Public Use
  Company Number: FR-GLAXOSMITHKLINE-B0430680A

PATIENT
  Age: 73 Year
  Sex: Female
  Weight: 45 kg

DRUGS (13)
  1. DEROXAT [Suspect]
     Indication: DEPRESSION
     Route: 048
     Dates: start: 20060309, end: 20060408
  2. ZYVOXID [Suspect]
     Dosage: 600MG TWICE PER DAY
     Route: 042
     Dates: start: 20060403, end: 20060414
  3. VANCOMYCIN [Concomitant]
     Route: 065
  4. RIFADIN [Concomitant]
     Dosage: 1200MG PER DAY
     Route: 065
     Dates: start: 20060403, end: 20060406
  5. HEPARIN [Concomitant]
     Route: 065
  6. MOTILIUM [Concomitant]
     Route: 065
  7. LEXOMIL [Concomitant]
     Route: 065
  8. CARDENSIEL [Concomitant]
     Route: 065
  9. LASILIX [Concomitant]
     Route: 065
  10. DIAMOX [Concomitant]
     Route: 065
  11. ATARAX [Concomitant]
     Route: 065
  12. SINTROM [Concomitant]
     Route: 065
  13. DIALYSIS [Concomitant]
     Dates: start: 20060101, end: 20060327

REACTIONS (11)
  - ACID BASE BALANCE ABNORMAL [None]
  - ANAEMIA [None]
  - ANION GAP [None]
  - ASTHENIA [None]
  - CYANOSIS [None]
  - DRUG INTERACTION [None]
  - GAMMA-GLUTAMYLTRANSFERASE INCREASED [None]
  - HYPERTENSION [None]
  - THROMBOCYTOPENIA [None]
  - VERTIGO [None]
  - VOMITING [None]
